FAERS Safety Report 22343969 (Version 1)
Quarter: 2023Q2

REPORT INFORMATION
  Report Type: Spontaneous
  Country: US (occurrence: None)
  Receive Date: 20230518
  Receipt Date: 20230518
  Transmission Date: 20230722
  Serious: No
  Sender: FDA-Public Use
  Company Number: None

PATIENT
  Age: 42 Year
  Sex: Female

DRUGS (2)
  1. MAXALT [Suspect]
     Active Substance: RIZATRIPTAN BENZOATE
     Indication: Migraine without aura
  2. ZOMIG [Suspect]
     Active Substance: ZOLMITRIPTAN
     Indication: Migraine without aura

REACTIONS (2)
  - Treatment failure [None]
  - Drug ineffective [None]

NARRATIVE: CASE EVENT DATE: 20230518
